FAERS Safety Report 9057287 (Version 1)
Quarter: 2013Q1

REPORT INFORMATION
  Report Type: Report from Study
  Country: JP (occurrence: JP)
  Receive Date: 20130131
  Receipt Date: 20130131
  Transmission Date: 20140127
  Serious: Yes (Other)
  Sender: FDA-Public Use
  Company Number: JP-GLAXOSMITHKLINE-B0860499A

PATIENT
  Age: 29 None
  Sex: Female
  Weight: 65 kg

DRUGS (8)
  1. TYKERB [Suspect]
     Indication: BREAST CANCER
     Route: 048
     Dates: start: 20100621, end: 20110228
  2. TYKERB [Suspect]
     Indication: BREAST CANCER
     Route: 048
     Dates: start: 20110301, end: 20110808
  3. TRASTUZUMAB [Concomitant]
     Indication: BREAST CANCER
     Route: 013
     Dates: start: 20100621, end: 20100721
  4. TRASTUZUMAB [Concomitant]
     Indication: BREAST CANCER
     Route: 042
     Dates: start: 20100914, end: 20101014
  5. TRASTUZUMAB [Concomitant]
     Indication: BREAST CANCER
     Route: 042
     Dates: start: 20101019, end: 20101119
  6. TRASTUZUMAB [Concomitant]
     Indication: BREAST CANCER
     Route: 042
     Dates: start: 20101102, end: 20101202
  7. TRASTUZUMAB [Concomitant]
     Route: 042
     Dates: start: 20110322, end: 20110507
  8. TRASTUZUMAB [Concomitant]
     Route: 042
     Dates: start: 20110527, end: 20110801

REACTIONS (3)
  - Interstitial lung disease [Recovering/Resolving]
  - Pneumonia [Recovering/Resolving]
  - Dry skin [Recovering/Resolving]
